FAERS Safety Report 8908728 (Version 2)
Quarter: 2012Q4

REPORT INFORMATION
  Report Type: 
  Country: US (occurrence: US)
  Receive Date: 20121113
  Receipt Date: 20121220
  Transmission Date: 20130627
  Serious: Yes (Other)
  Sender: FDA-Public Use
  Company Number: US-TEVA-369734USA

PATIENT
  Sex: Female

DRUGS (2)
  1. COPAXONE [Suspect]
     Indication: MULTIPLE SCLEROSIS
  2. AMPYRA [Suspect]
     Dosage: 20 Milligram Daily; Q 12 hrs
     Route: 048
     Dates: start: 20120130

REACTIONS (1)
  - Tuberculosis [Unknown]
